FAERS Safety Report 6030239-3 (Version None)
Quarter: 2009Q1

REPORT INFORMATION
  Report Type: 
  Country: None (occurrence: None)
  Receive Date: 20090105
  Receipt Date: 20090105
  Transmission Date: 20090719
  Serious: Yes (Other)
  Sender: FDA-Public Use
  Company Number: None

PATIENT
  Age: 21 Month
  Sex: Female
  Weight: 11.9296 kg

DRUGS (2)
  1. CEFDINIR [Suspect]
     Indication: OTITIS MEDIA
     Dosage: 4 ML ONCE A DAY PO
     Route: 048
     Dates: start: 20081227, end: 20081230
  2. CEFDINIR [Suspect]
     Indication: UPPER RESPIRATORY TRACT INFECTION
     Dosage: 4 ML ONCE A DAY PO
     Route: 048
     Dates: start: 20081227, end: 20081230

REACTIONS (6)
  - ABASIA [None]
  - BLISTER [None]
  - CRYING [None]
  - DERMATITIS DIAPER [None]
  - DIARRHOEA [None]
  - PAIN [None]
